FAERS Safety Report 4830179-9 (Version None)
Quarter: 2005Q4

REPORT INFORMATION
  Report Type: 
  Country: None (occurrence: None)
  Receive Date: 20051117
  Receipt Date: 20050930
  Transmission Date: 20060501
  Serious: Yes (Death, Hospitalization, Other)
  Sender: FDA-Public Use
  Company Number: US-MERCK-0510USA00738

PATIENT
  Age: 83 Year
  Sex: Male
  Weight: 68 kg

DRUGS (10)
  1. VIOXX [Suspect]
     Indication: ARTHRITIS
     Route: 048
     Dates: start: 20010406, end: 20010601
  2. ACCUPRIL [Concomitant]
     Route: 065
  3. CARDIZEM [Concomitant]
     Route: 065
  4. FERROUS SULFATE [Concomitant]
     Route: 065
  5. K-DUR 10 [Concomitant]
     Route: 065
  6. LEVAQUIN [Concomitant]
     Route: 065
  7. PREVACID [Concomitant]
     Route: 065
  8. PRILOSEC [Concomitant]
     Route: 065
  9. PROPRANOLOL HYDROCHLORIDE [Concomitant]
     Route: 065
  10. XANAX [Concomitant]
     Route: 065

REACTIONS (3)
  - ACUTE MYOCARDIAL INFARCTION [None]
  - ADVERSE EVENT [None]
  - DEATH [None]
